FAERS Safety Report 10927969 (Version 1)
Quarter: 2015Q1

REPORT INFORMATION
  Report Type: Spontaneous
  Country: US (occurrence: None)
  Receive Date: 20150316
  Receipt Date: 20150316
  Transmission Date: 20150721
  Serious: Yes (Other)
  Sender: FDA-Public Use
  Company Number: None

PATIENT
  Age: 75 Year
  Sex: Female
  Weight: 65.32 kg

DRUGS (1)
  1. METHOTREXATE [Suspect]
     Active Substance: METHOTREXATE
     Indication: RHEUMATOID ARTHRITIS
     Dosage: 4 TABS.

REACTIONS (7)
  - Headache [None]
  - Product quality issue [None]
  - Feeling jittery [None]
  - Vision blurred [None]
  - Product substitution issue [None]
  - Unevaluable event [None]
  - Pain of skin [None]

NARRATIVE: CASE EVENT DATE: 20150223
